FAERS Safety Report 24636366 (Version 3)
Quarter: 2024Q4

REPORT INFORMATION
  Report Type: Spontaneous
  Country: DE (occurrence: DE)
  Receive Date: 20241119
  Receipt Date: 20241129
  Transmission Date: 20250115
  Serious: Yes (Death, Other)
  Sender: SANOFI AVENTIS
  Company Number: None

PATIENT
  Age: 58 Year
  Sex: Male

DRUGS (9)
  1. FLUDARABINE PHOSPHATE [Suspect]
     Active Substance: FLUDARABINE PHOSPHATE
     Indication: Metastatic renal cell carcinoma
     Dosage: 25 MG/M2, QD
     Route: 042
  2. ANTI-THYMOCYTE GLOBULIN (RABBIT) NOS [Suspect]
     Active Substance: LAPINE T-LYMPHOCYTE IMMUNE GLOBULIN
     Indication: Metastatic renal cell carcinoma
     Dosage: 10 MG/KG, QD
     Route: 042
  3. CYCLOPHOSPHAMIDE [Suspect]
     Active Substance: CYCLOPHOSPHAMIDE
     Indication: Metastatic renal cell carcinoma
     Dosage: 60 MG/KG, QD
     Route: 042
  4. CYCLOSPORINE [Suspect]
     Active Substance: CYCLOSPORINE
     Indication: Prophylaxis against graft versus host disease
     Dosage: 2.5 MG, BID
     Route: 042
  5. AMPHOTERICIN B [Concomitant]
     Active Substance: AMPHOTERICIN B
     Indication: Infection prophylaxis
     Dosage: 4 ML, QD
  6. ACYCLOVIR [Concomitant]
     Active Substance: ACYCLOVIR
     Indication: Infection prophylaxis
     Dosage: 5 MG/KG, TID
     Route: 042
  7. CIPROFLOXACIN [Concomitant]
     Active Substance: CIPROFLOXACIN
     Indication: Infection prophylaxis
     Dosage: 500 MG, BID
     Route: 048
  8. COTRIMOXAZOLE [Concomitant]
     Active Substance: SULFAMETHOXAZOLE\TRIMETHOPRIM
     Indication: Antifungal prophylaxis
     Dosage: 960 MG, TIW
  9. GRANULOCYTE COLONY-STIMULATING FACTOR NOS [Concomitant]
     Active Substance: GRANULOCYTE COLONY-STIMULATING FACTOR NOS
     Indication: Haematopoietic stem cell mobilisation
     Dosage: UNK

REACTIONS (3)
  - Malignant neoplasm progression [Fatal]
  - Device related infection [Unknown]
  - Off label use [Unknown]
